FAERS Safety Report 4547651-1 (Version None)
Quarter: 2005Q1

REPORT INFORMATION
  Report Type: 
  Country: None (occurrence: None)
  Receive Date: 20050107
  Receipt Date: 20041230
  Transmission Date: 20050727
  Serious: Yes (Hospitalization)
  Sender: FDA-Public Use
  Company Number: US-ABBOTT-05P-163-0285080-00

PATIENT
  Age: 27 Year
  Sex: Female

DRUGS (5)
  1. DEPAKOTE [Suspect]
     Indication: EPILEPSY
     Dates: end: 20041001
  2. GABAPENTIN [Suspect]
     Indication: EPILEPSY
     Dates: start: 20041117
  3. LEVETIRACETAM [Suspect]
     Indication: EPILEPSY
  4. LEVETIRACETAM [Suspect]
  5. ZONISAMIDE [Suspect]
     Indication: EPILEPSY
     Dates: end: 20041001

REACTIONS (3)
  - IMMINENT ABORTION [None]
  - THREATENED LABOUR [None]
  - VOMITING [None]
